FAERS Safety Report 9302376 (Version 1)
Quarter: 2013Q2

REPORT INFORMATION
  Report Type: Spontaneous
  Country: US (occurrence: US)
  Receive Date: 20130522
  Receipt Date: 20130522
  Transmission Date: 20140414
  Serious: Yes (Hospitalization)
  Sender: FDA-Public Use
  Company Number: US-BIOGENIDEC-2013BI043892

PATIENT
  Age: 59 Year
  Sex: Female

DRUGS (8)
  1. TYSABRI [Suspect]
     Indication: PRODUCT USED FOR UNKNOWN INDICATION
     Dates: start: 2013, end: 201303
  2. CYMBALTA [Concomitant]
  3. NEXIUM [Concomitant]
  4. TRAMADOL [Concomitant]
  5. DIAZEPAM [Concomitant]
  6. CALCIUM [Concomitant]
  7. ACETAMINOPHEN W/ CODEINE [Concomitant]
  8. AMPYRA [Concomitant]
     Indication: GAIT DISTURBANCE

REACTIONS (1)
  - Kidney infection [Recovered/Resolved]
